FAERS Safety Report 6301770-8 (Version None)
Quarter: 2009Q3

REPORT INFORMATION
  Report Type: 
  Country: None (occurrence: None)
  Receive Date: 20090807
  Receipt Date: 20090730
  Transmission Date: 20100115
  Serious: Yes (Hospitalization)
  Sender: FDA-Public Use
  Company Number: JP-MERCK-0902USA01557

PATIENT
  Age: 80 Year
  Sex: Male

DRUGS (9)
  1. SINGULAIR [Suspect]
     Indication: RHINITIS ALLERGIC
     Route: 048
     Dates: start: 20081206, end: 20081208
  2. SINGULAIR [Suspect]
     Route: 048
     Dates: start: 20090113, end: 20090113
  3. TOWK [Concomitant]
     Dates: start: 20081206
  4. INTAL [Concomitant]
     Dates: start: 20081206, end: 20081206
  5. INTAL [Concomitant]
     Dates: start: 20090113, end: 20090113
  6. BLOPRESS [Concomitant]
     Route: 048
     Dates: start: 20081206
  7. PEPCID [Concomitant]
     Route: 048
     Dates: start: 20081206
  8. JUVELA N [Concomitant]
     Route: 065
     Dates: start: 20081206
  9. RIZE [Concomitant]
     Route: 048
     Dates: start: 20081206

REACTIONS (2)
  - LIVER DISORDER [None]
  - PANCREATIC DISORDER [None]
